FAERS Safety Report 4875219-6 (Version None)
Quarter: 2006Q1

REPORT INFORMATION
  Report Type: 
  Country: None (occurrence: None)
  Receive Date: 20060104
  Receipt Date: 20051221
  Transmission Date: 20060701
  Serious: Yes (Hospitalization)
  Sender: FDA-Public Use
  Company Number: 2005172109

PATIENT
  Age: 40 Year
  Sex: Female

DRUGS (5)
  1. HEPARIN SODIUM [Suspect]
     Indication: ILL-DEFINED DISORDER
     Dosage: INTRAVENOUS
     Route: 042
  2. STREPTASE [Suspect]
     Indication: ILL-DEFINED DISORDER
  3. METALYSE (TENECTEPLASE) [Suspect]
     Indication: ACUTE MYOCARDIAL INFARCTION
     Dosage: INTRAVENOUS
     Route: 042
  4. ASPIRIN [Concomitant]
  5. CLOPIDOGREL BISULFATE [Concomitant]

REACTIONS (1)
  - HAEMORRHAGE INTRACRANIAL [None]
